FAERS Safety Report 16013552 (Version 1)
Quarter: 2019Q1

REPORT INFORMATION
  Report Type: Spontaneous
  Country: US (occurrence: US)
  Receive Date: 20190222
  Receipt Date: 20190222
  Transmission Date: 20190418
  Serious: Yes (Other)
  Sender: FDA-Public Use
  Company Number: None

PATIENT
  Age: 57 Year
  Sex: Male
  Weight: 92.08 kg

DRUGS (1)
  1. ZUBSOLV [Suspect]
     Active Substance: BUPRENORPHINE HYDROCHLORIDE\NALOXONE HYDROCHLORIDE
     Indication: DRUG DEPENDENCE
     Dosage: 5.7/1.4 MG
     Route: 060
     Dates: start: 20190213, end: 20190220

REACTIONS (4)
  - Oral discomfort [None]
  - Hypertension [None]
  - Nausea [None]
  - Swelling of eyelid [None]

NARRATIVE: CASE EVENT DATE: 20190221
